FAERS Safety Report 25778986 (Version 1)
Quarter: 2025Q3

REPORT INFORMATION
  Report Type: Spontaneous
  Country: US (occurrence: US)
  Receive Date: 20250909
  Receipt Date: 20250909
  Transmission Date: 20251020
  Serious: Yes (Other)
  Sender: APOTEX
  Company Number: US-APOTEX-2025AP029670

PATIENT
  Sex: Female

DRUGS (1)
  1. CLOBAZAM [Suspect]
     Active Substance: CLOBAZAM
     Indication: Epilepsy
     Route: 065

REACTIONS (2)
  - Seizure [Unknown]
  - Maternal exposure during pregnancy [Unknown]
